FAERS Safety Report 5472148-4 (Version None)
Quarter: 2007Q3

REPORT INFORMATION
  Report Type: 
  Country: None (occurrence: None)
  Receive Date: 20070925
  Receipt Date: 20070910
  Transmission Date: 20080115
  Serious: Yes (Hospitalization)
  Sender: FDA-Public Use
  Company Number: 2007S1007997

PATIENT
  Age: 69 Year
  Sex: Female
  Weight: 41.7309 kg

DRUGS (13)
  1. FENTANYL TRANSDERMAL SYSTEM [Suspect]
     Indication: ABDOMINAL PAIN
     Dosage: 25 UG/HR; EVERY 3 DAYS; TRANSDERMAL; 25 UG;HR; EVERY 3 DAYS;TRANSDERAL
     Route: 062
     Dates: start: 20070810, end: 20070823
  2. FENTANYL TRANSDERMAL SYSTEM [Suspect]
     Indication: ABDOMINAL PAIN
     Dosage: 25 UG/HR; EVERY 3 DAYS; TRANSDERMAL; 25 UG;HR; EVERY 3 DAYS;TRANSDERAL
     Route: 062
     Dates: start: 20070827
  3. PLAQUENIL /00072601/ [Concomitant]
  4. PREVACID [Concomitant]
  5. REGLAN /00041901/ [Concomitant]
  6. LIPITOR [Concomitant]
  7. ASPIRIN [Concomitant]
  8. MIRALAX [Concomitant]
  9. KLONOPIN [Concomitant]
  10. VICODIN ES [Concomitant]
  11. CALCIUM + VITAMIN D [Concomitant]
  12. REFRESH LIQUIGEL /0007001/ [Concomitant]
  13. REFRESH PM /00880201/ [Concomitant]

REACTIONS (9)
  - BREAKTHROUGH PAIN [None]
  - FEELING COLD [None]
  - HYPERHIDROSIS [None]
  - INADEQUATE ANALGESIA [None]
  - INAPPROPRIATE SCHEDULE OF DRUG ADMINISTRATION [None]
  - MUSCLE SPASMS [None]
  - OVERDOSE [None]
  - PHARMACEUTICAL PRODUCT COMPLAINT [None]
  - TREMOR [None]
